FAERS Safety Report 19503677 (Version 2)
Quarter: 2021Q3

REPORT INFORMATION
  Report Type: Report from Study
  Country: US (occurrence: US)
  Receive Date: 20210707
  Receipt Date: 20210806
  Transmission Date: 20211014
  Serious: Yes (Other)
  Sender: FDA-Public Use
  Company Number: US-PFIZER INC-2021320666

PATIENT
  Age: 57 Year
  Sex: Female

DRUGS (2)
  1. IBRANCE [Suspect]
     Active Substance: PALBOCICLIB
     Indication: BREAST CANCER
     Dosage: 125 MG, CYCLIC (DAILY FOR 21 DAYS, AND OFF 7)
     Route: 048
     Dates: start: 20210224
  2. LETROZOLE. [Suspect]
     Active Substance: LETROZOLE
     Indication: BREAST CANCER
     Dosage: UNK, DAILY
     Dates: start: 20210224

REACTIONS (15)
  - Rash erythematous [Recovering/Resolving]
  - Increased appetite [Not Recovered/Not Resolved]
  - Nasal congestion [Unknown]
  - Pain [Unknown]
  - Insomnia [Unknown]
  - Energy increased [Unknown]
  - Weight increased [Unknown]
  - Cough [Unknown]
  - Blood count abnormal [Unknown]
  - Sneezing [Unknown]
  - Pneumonia [Unknown]
  - Urinary tract infection [Unknown]
  - Immunodeficiency [Unknown]
  - Fatigue [Unknown]
  - Anaemia [Unknown]

NARRATIVE: CASE EVENT DATE: 20210312
